FAERS Safety Report 16439757 (Version 1)
Quarter: 2019Q3

REPORT INFORMATION
  Report Type: Spontaneous
  Country: US (occurrence: US)
  Receive Date: 20190617
  Receipt Date: 20190617
  Transmission Date: 20191004
  Serious: Yes (Other)
  Sender: FDA-Public Use
  Company Number: None

PATIENT
  Age: 68 Year
  Sex: Female
  Weight: 61.29 kg

DRUGS (8)
  1. ZOFRAN [Concomitant]
     Active Substance: ONDANSETRON HYDROCHLORIDE
  2. LEXAPRO [Concomitant]
     Active Substance: ESCITALOPRAM OXALATE
  3. PROCHLORPERAZINE. [Concomitant]
     Active Substance: PROCHLORPERAZINE
  4. HEARTBURN RELIEF [Concomitant]
  5. LIDOCAINE. [Concomitant]
     Active Substance: LIDOCAINE
  6. CAPECITABINE. [Suspect]
     Active Substance: CAPECITABINE
     Indication: BREAST CANCER
     Dosage: ?          OTHER FREQUENCY:3 TAB AM;?
     Route: 048
     Dates: start: 20190218
  7. CLONAZEPAM. [Concomitant]
     Active Substance: CLONAZEPAM
  8. CLARITIN [Concomitant]
     Active Substance: LORATADINE

REACTIONS (2)
  - Loss of consciousness [None]
  - Panic attack [None]
